FAERS Safety Report 23318091 (Version 1)
Quarter: 2023Q4

REPORT INFORMATION
  Report Type: Spontaneous
  Country: FR (occurrence: FR)
  Receive Date: 20231219
  Receipt Date: 20231219
  Transmission Date: 20240110
  Serious: Yes (Life-Threatening, Other)
  Sender: FDA-Public Use
  Company Number: FR-AFSSAPS-AM2023001070

PATIENT
  Age: 64 Year
  Sex: Male

DRUGS (10)
  1. AMOXICILLIN\CLAVULANIC ACID [Suspect]
     Active Substance: AMOXICILLIN\CLAVULANIC ACID
     Indication: Antibiotic prophylaxis
     Dosage: 1 DOSAGE FORM (1 TOTAL)
     Route: 042
     Dates: start: 20230208, end: 20230208
  2. CISATRACURIUM [Suspect]
     Active Substance: CISATRACURIUM
     Indication: General anaesthesia
     Dosage: 10 MILLIGRAM (1 TOATL)
     Route: 042
     Dates: start: 20230208, end: 20230208
  3. KETAMINE [Suspect]
     Active Substance: KETAMINE
     Indication: General anaesthesia
     Dosage: 20 MILLIGRAM (1 TOTAL)
     Route: 042
     Dates: start: 20230208, end: 20230208
  4. MIDAZOLAM [Suspect]
     Active Substance: MIDAZOLAM
     Indication: General anaesthesia
     Dosage: 2 MILLIGRAM (1 TOTAL)
     Route: 042
     Dates: start: 20230208, end: 20230208
  5. ROPIVACAINE HYDROCHLORIDE [Suspect]
     Active Substance: ROPIVACAINE HYDROCHLORIDE
     Indication: General anaesthesia
     Dosage: 190 MILLIGRAM (1 TOTAL)
     Route: 042
     Dates: start: 20230208, end: 20230208
  6. PROPOFOL [Suspect]
     Active Substance: PROPOFOL
     Indication: General anaesthesia
     Dosage: 120 MILLIGRAM (1 TOTAL)
     Route: 042
     Dates: start: 20230208, end: 20230208
  7. SUFENTANIL [Suspect]
     Active Substance: SUFENTANIL
     Indication: General anaesthesia
     Dosage: 12.5 MILLIGRAM (1 TOTAL)
     Route: 042
     Dates: start: 20230208, end: 20230208
  8. SEVOFLURANE [Suspect]
     Active Substance: SEVOFLURANE
     Indication: General anaesthesia
     Dosage: UNK
     Route: 042
     Dates: start: 20230208, end: 20230208
  9. CRESTOR [Concomitant]
     Active Substance: ROSUVASTATIN CALCIUM
     Indication: Product used for unknown indication
     Dosage: UNK
     Route: 065
  10. RAMIPRIL [Concomitant]
     Active Substance: RAMIPRIL
     Indication: Product used for unknown indication
     Dosage: UNK
     Route: 065

REACTIONS (1)
  - Anaphylactic shock [Recovered/Resolved]

NARRATIVE: CASE EVENT DATE: 20230208
